FAERS Safety Report 5951827-6 (Version None)
Quarter: 2008Q4

REPORT INFORMATION
  Report Type: 
  Country: None (occurrence: None)
  Receive Date: 20081113
  Receipt Date: 20081031
  Transmission Date: 20090506
  Serious: Yes (Other)
  Sender: FDA-Public Use
  Company Number: B0545203A

PATIENT
  Age: 59 Year
  Sex: Male

DRUGS (7)
  1. COMBIVIR [Suspect]
     Indication: HIV INFECTION
     Route: 065
     Dates: start: 20000526, end: 20000915
  2. ZIAGEN [Suspect]
     Indication: HIV INFECTION
     Route: 065
     Dates: start: 20000526, end: 20000915
  3. EPIVIR [Suspect]
     Indication: HIV INFECTION
     Route: 065
     Dates: start: 20040315
  4. INVIRASE [Suspect]
     Indication: HIV INFECTION
     Route: 065
     Dates: start: 20040315
  5. NORVIR [Suspect]
     Indication: HIV INFECTION
     Route: 065
     Dates: start: 20040315
  6. VIREAD [Suspect]
     Indication: HIV INFECTION
     Route: 065
     Dates: start: 20040315
  7. REYATAZ [Suspect]
     Indication: HIV INFECTION
     Route: 065
     Dates: start: 20040416

REACTIONS (2)
  - ADVERSE DRUG REACTION [None]
  - NEPHROPATHY TOXIC [None]
